FAERS Safety Report 7868229 (Version 7)
Quarter: 2013Q3

REPORT INFORMATION
  Report Type: Report from Study
  Country: CA (occurrence: CA)
  Receive Date: 20110323
  Receipt Date: 20130918
  Transmission Date: 20140515
  Serious: Yes (Death, Other)
  Sender: FDA-Public Use
  Company Number: PHHY2010CA86856

PATIENT
  Sex: Male

DRUGS (13)
  1. SANDOSTATIN LAR [Suspect]
     Indication: ACROMEGALY
     Dosage: 30 MG, UNK
     Route: 030
     Dates: start: 20040614
  2. SANDOSTATIN LAR [Suspect]
     Dosage: 30 MG, EVERY 4 WEEK
     Route: 030
     Dates: start: 20050217
  3. SANDOSTATIN LAR [Suspect]
     Dosage: 30 MG, QMO
     Route: 030
  4. SANDOSTATIN LAR [Suspect]
     Dosage: 20 MG, ONCE A MONTH
     Route: 030
     Dates: start: 201202
  5. SANDOSTATIN LAR [Suspect]
     Dosage: 20 MG, EVERY 4 WEEKS
     Route: 030
     Dates: end: 20130815
  6. AMIODARONE [Concomitant]
     Dosage: 200 MG, PER DAY
  7. SPIRONOLACTONE [Concomitant]
     Dosage: 25 MG, PER DAY
  8. RAMIPRIL [Concomitant]
     Dosage: 2.5 MG, BID
  9. METFORMIN [Concomitant]
  10. CRESTOR [Concomitant]
  11. ASA [Concomitant]
  12. FUROSEMIDE [Concomitant]
     Dosage: 20 MG, PER DAY
  13. CARVEDILOL [Concomitant]
     Dosage: 2.5 MG, BID

REACTIONS (10)
  - Death [Fatal]
  - Polyp [Unknown]
  - Blood pressure decreased [Unknown]
  - Heart rate irregular [Unknown]
  - Blood glucose increased [Unknown]
  - Haemorrhoids [Unknown]
  - Weight decreased [Unknown]
  - Depressed mood [Unknown]
  - Haematochezia [Unknown]
  - Decreased appetite [Unknown]
